FAERS Safety Report 14675739 (Version 2)
Quarter: 2018Q2

REPORT INFORMATION
  Report Type: Report from Study
  Country: US (occurrence: US)
  Receive Date: 20180323
  Receipt Date: 20180419
  Transmission Date: 20180711
  Serious: Yes (Disabling, Other)
  Sender: FDA-Public Use
  Company Number: US-REGENERON PHARMACEUTICALS, INC.-2017-26318

PATIENT

DRUGS (3)
  1. ARCALYST [Suspect]
     Active Substance: RILONACEPT
     Dosage: 220 MG, ONCE WEEKLY
     Route: 058
     Dates: start: 20180405, end: 20180405
  2. ARCALYST [Suspect]
     Active Substance: RILONACEPT
     Dosage: 220 MG, WEEKLY
     Route: 058
     Dates: start: 20171103
  3. ARCALYST [Suspect]
     Active Substance: RILONACEPT
     Indication: FAMILIAL COLD AUTOINFLAMMATORY SYNDROME
     Dosage: 220 MG, WEEKLY
     Route: 058
     Dates: start: 20080429

REACTIONS (8)
  - Dyspnoea [Not Recovered/Not Resolved]
  - Drug ineffective [Unknown]
  - Blindness [Unknown]
  - Chills [Recovered/Resolved]
  - Abdominal distension [Unknown]
  - Rash [Unknown]
  - Muscle spasms [Recovered/Resolved]
  - Fatigue [Recovered/Resolved]

NARRATIVE: CASE EVENT DATE: 20180409
